FAERS Safety Report 8183385-2 (Version None)
Quarter: 2012Q1

REPORT INFORMATION
  Report Type: 
  Country: None (occurrence: None)
  Receive Date: 20120130
  Receipt Date: 20111021
  Transmission Date: 20120608
  Serious: Yes (Other)
  Sender: FDA-Public Use
  Company Number: 044100

PATIENT
  Sex: Male

DRUGS (3)
  1. PRIMIDONE [Concomitant]
  2. KEPPRA [Suspect]
     Indication: GRAND MAL CONVULSION
     Dosage: (UNKNOWN DOSE ORAL), (1500 MG BID ORAL)
     Route: 048
     Dates: end: 20110801
  3. KEPPRA [Suspect]
     Indication: GRAND MAL CONVULSION
     Dosage: (UNKNOWN DOSE ORAL), (1500 MG BID ORAL)
     Route: 048
     Dates: start: 20110829

REACTIONS (2)
  - DRUG DOSE OMISSION [None]
  - CONVULSION [None]
